FAERS Safety Report 4698399-4 (Version None)
Quarter: 2005Q2

REPORT INFORMATION
  Report Type: 
  Country: None (occurrence: None)
  Receive Date: 20050621
  Receipt Date: 20050608
  Transmission Date: 20051028
  Serious: Yes (Other)
  Sender: FDA-Public Use
  Company Number: EWC050644391

PATIENT
  Age: 60 Year
  Sex: Female

DRUGS (2)
  1. YENTREVE (DULOXETINE HYDROCHLORIDE) [Suspect]
     Indication: INCONTINENCE
     Dosage: 40 MG/2 DAY
     Dates: start: 20050530, end: 20050530
  2. ENALAPRIL MALEATE [Concomitant]

REACTIONS (3)
  - NAUSEA [None]
  - OVERWEIGHT [None]
  - SYNCOPE [None]
